FAERS Safety Report 23243081 (Version 1)
Quarter: 2023Q4

REPORT INFORMATION
  Report Type: Spontaneous
  Country: US (occurrence: US)
  Receive Date: 20231130
  Receipt Date: 20231130
  Transmission Date: 20240109
  Serious: Yes (Other)
  Sender: FDA-Public Use
  Company Number: US-STRIDES ARCOLAB LIMITED-2023SP015161

PATIENT
  Age: 34 Year
  Sex: Male

DRUGS (10)
  1. PREDNISOLONE [Suspect]
     Active Substance: PREDNISOLONE
     Indication: Immune reconstitution inflammatory syndrome
     Dosage: UNK
     Route: 065
  2. PREDNISOLONE [Suspect]
     Active Substance: PREDNISOLONE
     Indication: Disseminated mycobacterium avium complex infection
     Dosage: UNK, (PREDNISONE WAS SLOWLY WEANED OFF)
     Route: 065
  3. BICTEGRAVIR\EMTRICITABINE\TENOFOVIR ALAFENAMIDE [Concomitant]
     Active Substance: BICTEGRAVIR\EMTRICITABINE\TENOFOVIR ALAFENAMIDE
     Indication: HIV infection
     Dosage: UNK
     Route: 065
  4. AZITHROMYCIN [Concomitant]
     Active Substance: AZITHROMYCIN
     Indication: Disseminated mycobacterium avium complex infection
     Dosage: UNK
     Route: 065
  5. ETHAMBUTOL [Concomitant]
     Active Substance: ETHAMBUTOL HYDROCHLORIDE
     Indication: Disseminated mycobacterium avium complex infection
     Dosage: UNK
     Route: 065
  6. RIFABUTIN [Concomitant]
     Active Substance: RIFABUTIN
     Indication: Disseminated mycobacterium avium complex infection
     Dosage: UNK
     Route: 065
  7. MOXIFLOXACIN [Concomitant]
     Active Substance: MOXIFLOXACIN
     Indication: Disseminated mycobacterium avium complex infection
     Dosage: UNK
     Route: 065
  8. MOXIFLOXACIN [Concomitant]
     Active Substance: MOXIFLOXACIN
     Indication: Immune reconstitution inflammatory syndrome
  9. TEDIZOLID [Concomitant]
     Active Substance: TEDIZOLID
     Indication: Disseminated mycobacterium avium complex infection
     Dosage: UNK
     Route: 065
  10. TEDIZOLID [Concomitant]
     Active Substance: TEDIZOLID
     Indication: Immune reconstitution inflammatory syndrome

REACTIONS (4)
  - Varicella zoster virus infection [Recovered/Resolved]
  - Infection reactivation [Recovered/Resolved]
  - Cytomegalovirus chorioretinitis [Recovered/Resolved]
  - Off label use [Unknown]
